FAERS Safety Report 8617094-X (Version None)
Quarter: 2012Q3

REPORT INFORMATION
  Report Type: 
  Country: None (occurrence: None)
  Receive Date: 20120823
  Receipt Date: 20120820
  Transmission Date: 20120928
  Serious: No
  Sender: FDA-Public Use
  Company Number: US-009507513-1208USA008362

PATIENT

DRUGS (2)
  1. METFORMIN HCL [Suspect]
  2. JANUVIA [Suspect]
     Dosage: UNK DF, UNK
     Route: 048

REACTIONS (2)
  - HYPOAESTHESIA ORAL [None]
  - AGEUSIA [None]
